FAERS Safety Report 8574507-X (Version None)
Quarter: 2012Q3

REPORT INFORMATION
  Report Type: 
  Country: None (occurrence: None)
  Receive Date: 20120806
  Receipt Date: 20110901
  Transmission Date: 20120928
  Serious: No
  Sender: FDA-Public Use
  Company Number: US-ABBOTT-11P-163-0850895-00

PATIENT
  Sex: Male

DRUGS (6)
  1. MAGNESIUM OXIDE [Concomitant]
     Indication: PRODUCT USED FOR UNKNOWN INDICATION
  2. DEPAKOTE ER [Suspect]
     Indication: CONVULSION
     Dosage: 1000 MG DAILY
  3. IRON [Concomitant]
     Indication: PRODUCT USED FOR UNKNOWN INDICATION
  4. CALCIUM CITRATE [Concomitant]
     Indication: PRODUCT USED FOR UNKNOWN INDICATION
  5. MULTI-VITAMIN [Concomitant]
     Indication: PRODUCT USED FOR UNKNOWN INDICATION
  6. PRILOSEC [Concomitant]
     Indication: PRODUCT USED FOR UNKNOWN INDICATION

REACTIONS (1)
  - MEDICATION RESIDUE [None]
